FAERS Safety Report 6144699-0 (Version None)
Quarter: 2009Q2

REPORT INFORMATION
  Report Type: 
  Country: None (occurrence: None)
  Receive Date: 20090406
  Receipt Date: 20090330
  Transmission Date: 20091009
  Serious: Yes (Other)
  Sender: FDA-Public Use
  Company Number: B0567582A

PATIENT
  Age: 45 Year
  Sex: Female

DRUGS (2)
  1. SALBUTAMOL [Suspect]
     Indication: ASTHMA
     Route: 055
  2. CLENIL MODULITE [Suspect]
     Indication: ASTHMA
     Route: 055
     Dates: start: 20080909

REACTIONS (1)
  - SWELLING FACE [None]
